FAERS Safety Report 4426216-6 (Version None)
Quarter: 2004Q3

REPORT INFORMATION
  Report Type: 
  Country: None (occurrence: None)
  Receive Date: 20040811
  Receipt Date: 20040729
  Transmission Date: 20050211
  Serious: Yes (Hospitalization, Other)
  Sender: FDA-Public Use
  Company Number: 2003007932

PATIENT
  Age: 85 Year
  Sex: Male

DRUGS (13)
  1. SERTRALINE HCL [Suspect]
     Indication: DEPRESSION
     Dosage: 50 MG (1 IN 1 D), ORAL
     Route: 048
     Dates: start: 20021209, end: 20030106
  2. FLUCONAZOLE [Concomitant]
  3. LANSOPRAZOLE [Concomitant]
  4. METOCLOPRAMIDE [Concomitant]
  5. CELECOXIB [Concomitant]
  6. COLOXYL WITH DANTHRON (DANTRON, DOCUSATE SODIUM) [Concomitant]
  7. METOPROLOL [Concomitant]
  8. LISINOPRIL [Concomitant]
  9. FUROSEMIDE [Concomitant]
  10. AMILORIDE [Concomitant]
  11. MEGESTROL [Concomitant]
  12. ISOSORBIDE MONONITRATE [Concomitant]
  13. MORPHINE SULFATE [Concomitant]

REACTIONS (3)
  - BLOOD CREATININE INCREASED [None]
  - HALLUCINATION [None]
  - SEROTONIN SYNDROME [None]
